FAERS Safety Report 9221974 (Version 1)
Quarter: 2013Q2

REPORT INFORMATION
  Report Type: Spontaneous
  Country: US (occurrence: US)
  Receive Date: 20130410
  Receipt Date: 20130410
  Transmission Date: 20140414
  Serious: No
  Sender: FDA-Public Use
  Company Number: US-PFIZER INC-2013112909

PATIENT
  Sex: Female

DRUGS (3)
  1. ENBREL [Suspect]
     Indication: PRODUCT USED FOR UNKNOWN INDICATION
     Dosage: UNK
  2. METHOTREXATE SODIUM [Suspect]
     Dosage: UNK
  3. PREDNISONE [Suspect]
     Dosage: UNK

REACTIONS (2)
  - Weight increased [Unknown]
  - Alopecia [Unknown]
